FAERS Safety Report 6540559-1 (Version None)
Quarter: 2010Q1

REPORT INFORMATION
  Report Type: 
  Country: None (occurrence: None)
  Receive Date: 20100118
  Receipt Date: 20091217
  Transmission Date: 20100710
  Serious: No
  Sender: FDA-Public Use
  Company Number: US-BAYER-200939627NA

PATIENT
  Age: 61 Year
  Sex: Female

DRUGS (13)
  1. BETASERON [Suspect]
     Indication: DRUG USE FOR UNKNOWN INDICATION
     Dosage: AS USED: 8 MIU
     Dates: start: 20090301
  2. NEURONTIN [Concomitant]
     Indication: DEPRESSION
     Dosage: TOTAL DAILY DOSE: 2000 MG
  3. BUSPAR [Concomitant]
     Indication: DEPRESSION
     Dosage: TOTAL DAILY DOSE: 10 MG
  4. RITALIN [Concomitant]
  5. LAMICTAL [Concomitant]
  6. ZOCOR [Concomitant]
  7. SINGULAIR [Concomitant]
  8. FLEXERIL [Concomitant]
  9. MOBIC [Concomitant]
  10. TOPAMAX [Concomitant]
     Dosage: TOTAL DAILY DOSE: 200 MG
  11. KLONOPIN [Concomitant]
     Dosage: TOTAL DAILY DOSE: 200 MG
  12. BACTRIM [Concomitant]
     Indication: STAPHYLOCOCCAL ABSCESS
  13. ZINC [Concomitant]

REACTIONS (2)
  - HYPOAESTHESIA [None]
  - PARAESTHESIA [None]
